FAERS Safety Report 20514079 (Version 1)
Quarter: 2022Q1

REPORT INFORMATION
  Report Type: Spontaneous
  Country: US (occurrence: US)
  Receive Date: 20220224
  Receipt Date: 20220224
  Transmission Date: 20220424
  Serious: No
  Sender: FDA-Public Use
  Company Number: US-AMNEAL PHARMACEUTICALS-2021-AMRX-03641

PATIENT
  Sex: Female

DRUGS (2)
  1. RYTARY [Suspect]
     Active Substance: CARBIDOPA\LEVODOPA
     Indication: Parkinson^s disease
     Dosage: 36.25/145MG, 3 CAPSULES, TID
     Route: 048
     Dates: start: 20210719, end: 2021
  2. RYTARY [Suspect]
     Active Substance: CARBIDOPA\LEVODOPA
     Dosage: 61.25/245MG, 2 CAPSULES, TID
     Route: 048
     Dates: start: 2021

REACTIONS (4)
  - Therapeutic response shortened [Unknown]
  - Ill-defined disorder [Unknown]
  - Panic attack [Unknown]
  - Tremor [Unknown]

NARRATIVE: CASE EVENT DATE: 20210101
